FAERS Safety Report 25175286 (Version 1)
Quarter: 2025Q2

REPORT INFORMATION
  Report Type: Report from Study
  Country: US (occurrence: US)
  Receive Date: 20250408
  Receipt Date: 20250408
  Transmission Date: 20250716
  Serious: No
  Sender: TG THERAPEUTICS
  Company Number: US-TG THERAPEUTICS INC.-TGT004491

PATIENT

DRUGS (3)
  1. UBLITUXIMAB [Suspect]
     Active Substance: UBLITUXIMAB
     Indication: Multiple sclerosis
     Route: 042
  2. UBLITUXIMAB [Suspect]
     Active Substance: UBLITUXIMAB
     Route: 042
     Dates: start: 20250117, end: 20250117
  3. ALBENDAZOLE [Concomitant]
     Active Substance: ALBENDAZOLE
     Indication: Infection parasitic

REACTIONS (1)
  - Skin lesion [Unknown]
